FAERS Safety Report 4557836-6 (Version None)
Quarter: 2005Q1

REPORT INFORMATION
  Report Type: 
  Country: None (occurrence: None)
  Receive Date: 20050103
  Receipt Date: 20040920
  Transmission Date: 20050727
  Serious: Yes (Other)
  Sender: FDA-Public Use
  Company Number: 2004UW19548

PATIENT
  Age: 64 Year
  Sex: Female
  Weight: 79.3795 kg

DRUGS (5)
  1. CRESTOR [Suspect]
     Indication: BLOOD CHOLESTEROL INCREASED
     Dosage: 10 MG DAILY PO
     Route: 048
  2. TOPROL-XL [Concomitant]
  3. ACTONEL [Concomitant]
  4. MULTIVITAMIN [Concomitant]
  5. CALCIUM GLUCONATE [Concomitant]

REACTIONS (2)
  - ABDOMINAL DISTENSION [None]
  - FLATULENCE [None]
